FAERS Safety Report 16804409 (Version 1)
Quarter: 2019Q4

REPORT INFORMATION
  Report Type: Spontaneous
  Country: US (occurrence: US)
  Receive Date: 20190912
  Receipt Date: 20190912
  Transmission Date: 20200122
  Serious: Yes (Other)
  Sender: FDA-Public Use
  Company Number: None

PATIENT
  Age: 17 Year
  Sex: Female
  Weight: 61.23 kg

DRUGS (1)
  1. NEXPLANON [Suspect]
     Active Substance: ETONOGESTREL

REACTIONS (6)
  - Nausea [None]
  - Headache [None]
  - Mood swings [None]
  - Pain [None]
  - Muscle spasms [None]
  - Menorrhagia [None]

NARRATIVE: CASE EVENT DATE: 20190716
